FAERS Safety Report 9102764 (Version 1)
Quarter: 2013Q1

REPORT INFORMATION
  Report Type: Spontaneous
  Country: JP (occurrence: JP)
  Receive Date: 20130219
  Receipt Date: 20130219
  Transmission Date: 20140127
  Serious: Yes (Other)
  Sender: FDA-Public Use
  Company Number: JP-UCBSA-078188

PATIENT
  Sex: Female

DRUGS (2)
  1. XYZAL [Suspect]
     Indication: ECZEMA ASTEATOTIC
     Route: 048
     Dates: start: 20121107, end: 201212
  2. XYZAL [Suspect]
     Indication: ECZEMA ASTEATOTIC
     Route: 048
     Dates: start: 20130110, end: 2013

REACTIONS (8)
  - Anaphylactic shock [Unknown]
  - Palpitations [Unknown]
  - Tachycardia [Unknown]
  - Dyspnoea [Unknown]
  - Erythema [Unknown]
  - Eye haemorrhage [Unknown]
  - Rash [Unknown]
  - Hypoxia [Unknown]
